FAERS Safety Report 13895280 (Version 1)
Quarter: 2017Q3

REPORT INFORMATION
  Report Type: Spontaneous
  Country: US (occurrence: US)
  Receive Date: 20170818
  Receipt Date: 20170818
  Transmission Date: 20171127
  Serious: Yes (Disabling)
  Sender: FDA-Public Use
  Company Number: None

PATIENT
  Age: 52 Year
  Sex: Female
  Weight: 81 kg

DRUGS (4)
  1. DOXYCYCLINE HYCLATE. [Suspect]
     Active Substance: DOXYCYCLINE HYCLATE
     Indication: LYME DISEASE
     Dosage: ?          QUANTITY:1 TABLET(S);?
     Route: 048
  2. ACIDOPHILUS PROBIOTIC [Concomitant]
  3. DOXYCYCLINE HYCLATE. [Suspect]
     Active Substance: DOXYCYCLINE HYCLATE
     Indication: PROPHYLAXIS
     Dosage: ?          QUANTITY:1 TABLET(S);?
     Route: 048
  4. PRESERVISION AREDS II WITH MULTIVITAMIN [Concomitant]

REACTIONS (3)
  - Peripheral swelling [None]
  - Intentional product use issue [None]
  - Pain in extremity [None]

NARRATIVE: CASE EVENT DATE: 20170720
